FAERS Safety Report 8182189-4 (Version None)
Quarter: 2012Q1

REPORT INFORMATION
  Report Type: 
  Country: None (occurrence: None)
  Receive Date: 20120302
  Receipt Date: 20120227
  Transmission Date: 20120608
  Serious: Yes (Death)
  Sender: FDA-Public Use
  Company Number: US-ASTRAZENECA-2012SE13607

PATIENT
  Sex: Male

DRUGS (1)
  1. VANDETANIB [Suspect]
     Indication: THYROID CANCER
     Route: 048

REACTIONS (1)
  - ARTERIAL RUPTURE [None]
